FAERS Safety Report 7784687-1 (Version None)
Quarter: 2011Q3

REPORT INFORMATION
  Report Type: 
  Country: None (occurrence: None)
  Receive Date: 20110926
  Receipt Date: 20110921
  Transmission Date: 20111222
  Serious: Yes (Other)
  Sender: FDA-Public Use
  Company Number: 2011SP043731

PATIENT
  Age: 20 Year
  Sex: Female
  Weight: 85.2762 kg

DRUGS (1)
  1. IMPLANON [Suspect]
     Indication: CONTRACEPTION
     Dates: start: 20100512

REACTIONS (8)
  - SUICIDAL IDEATION [None]
  - ACTIVITIES OF DAILY LIVING IMPAIRED [None]
  - WEIGHT INCREASED [None]
  - ABDOMINAL PAIN [None]
  - HAEMORRHAGE [None]
  - DEPRESSION [None]
  - NAUSEA [None]
  - PAIN [None]
